FAERS Safety Report 17369281 (Version 1)
Quarter: 2020Q1

REPORT INFORMATION
  Report Type: Spontaneous
  Country: US (occurrence: US)
  Receive Date: 20200203
  Receipt Date: 20200203
  Transmission Date: 20200409
  Serious: Yes (Disabling, Other)
  Sender: FDA-Public Use
  Company Number: None

PATIENT
  Age: 38 Year
  Sex: Female
  Weight: 51.75 kg

DRUGS (1)
  1. METRONIDAZOLE 500 MG TABLET [Suspect]
     Active Substance: METRONIDAZOLE
     Indication: BACTERIAL VAGINOSIS
     Dosage: ?          QUANTITY:1 TABLET(S);?
     Dates: start: 20200130, end: 20200203

REACTIONS (8)
  - Heart rate increased [None]
  - Dizziness [None]
  - Eye irritation [None]
  - Dyspnoea [None]
  - Lacrimation increased [None]
  - Disturbance in attention [None]
  - Tremor [None]
  - Disorganised speech [None]

NARRATIVE: CASE EVENT DATE: 20200203
